FAERS Safety Report 5201352-5 (Version None)
Quarter: 2006Q4

REPORT INFORMATION
  Report Type: 
  Country: None (occurrence: None)
  Receive Date: 20061016
  Receipt Date: 20020417
  Transmission Date: 20070319
  Serious: Yes (Other)
  Sender: FDA-Public Use
  Company Number: PHEH2002US03702

PATIENT
  Age: 66 Year
  Sex: Female

DRUGS (7)
  1. MIACALCIN [Suspect]
     Indication: OSTEOPOROSIS
     Dosage: 200 IU/ML, QD, INTRANASAL
     Dates: start: 20010601, end: 20020418
  2. FOSAMAX [Concomitant]
  3. VIVELLE PATCH (ESTRADIOL) [Concomitant]
  4. NATURAL PROGESTERONE (PROGESTERONE) [Concomitant]
  5. CITRACAL (CALCIUM CITRATE) [Concomitant]
  6. VITAMIN D [Concomitant]
  7. LEVOTHYROXINE SODIUM [Concomitant]

REACTIONS (3)
  - ALOPECIA [None]
  - BACK PAIN [None]
  - DEAFNESS [None]
